FAERS Safety Report 7298599-3 (Version None)
Quarter: 2011Q1

REPORT INFORMATION
  Report Type: 
  Country: None (occurrence: None)
  Receive Date: 20110217
  Receipt Date: 20110204
  Transmission Date: 20110831
  Serious: Yes (Hospitalization)
  Sender: FDA-Public Use
  Company Number: PHHY2011AU08919

PATIENT
  Sex: Female

DRUGS (1)
  1. EXFORGE HCT [Suspect]

REACTIONS (2)
  - URINARY TRACT INFECTION [None]
  - CIRCULATORY COLLAPSE [None]
